FAERS Safety Report 12717880 (Version 1)
Quarter: 2016Q3

REPORT INFORMATION
  Report Type: Other
  Country: US (occurrence: US)
  Receive Date: 20160906
  Receipt Date: 20160906
  Transmission Date: 20161109
  Serious: Yes (Other)
  Sender: FDA-Public Use
  Company Number: US-SHIRE-US201610876

PATIENT
  Sex: Female

DRUGS (2)
  1. GATTEX [Suspect]
     Active Substance: TEDUGLUTIDE\WATER
     Indication: SHORT-BOWEL SYNDROME
     Dosage: UNK UNK, UNKNOWN
     Route: 058
     Dates: start: 20141201
  2. GATTEX [Suspect]
     Active Substance: TEDUGLUTIDE\WATER
     Dosage: UNK, 3 DAYS A WEEK
     Route: 058

REACTIONS (12)
  - Malaise [Unknown]
  - Gastrointestinal stoma complication [Unknown]
  - Blood creatine increased [Unknown]
  - Dehydration [Unknown]
  - Depressed mood [Unknown]
  - Mobility decreased [Unknown]
  - Inappropriate schedule of drug administration [Unknown]
  - Sepsis [Unknown]
  - Arthropathy [Unknown]
  - Drug dose omission [Unknown]
  - Intestinal obstruction [Unknown]
  - Decreased appetite [Unknown]

NARRATIVE: CASE EVENT DATE: 2016
